FAERS Safety Report 8301887-2 (Version None)
Quarter: 2012Q2

REPORT INFORMATION
  Report Type: 
  Country: None (occurrence: None)
  Receive Date: 20120418
  Receipt Date: 20120418
  Transmission Date: 20120825
  Serious: No
  Sender: FDA-Public Use
  Company Number: None

PATIENT
  Age: 76 Year
  Sex: Female
  Weight: 63.5036 kg

DRUGS (1)
  1. AMIODARONE HCL [Suspect]
     Indication: ATRIAL FIBRILLATION
     Dates: start: 20100715, end: 20110117

REACTIONS (9)
  - DYSGEUSIA [None]
  - CATARACT [None]
  - TREMOR [None]
  - DYSPNOEA [None]
  - PANIC ATTACK [None]
  - DIZZINESS [None]
  - COUGH [None]
  - SKIN DISCOLOURATION [None]
  - INSOMNIA [None]
